FAERS Safety Report 7778326-3 (Version None)
Quarter: 2011Q3

REPORT INFORMATION
  Report Type: 
  Country: None (occurrence: None)
  Receive Date: 20110926
  Receipt Date: 20110912
  Transmission Date: 20111222
  Serious: No
  Sender: FDA-Public Use
  Company Number: US-BAYER-2011-084921

PATIENT
  Age: 38 Year
  Sex: Female

DRUGS (1)
  1. BEYAZ [Suspect]
     Indication: DYSMENORRHOEA
     Dosage: UNK
     Route: 048
     Dates: start: 20110601

REACTIONS (5)
  - MUSCULOSKELETAL PAIN [None]
  - ANXIETY [None]
  - HEADACHE [None]
  - ARTHRALGIA [None]
  - LIBIDO DECREASED [None]
